FAERS Safety Report 19083037 (Version 2)
Quarter: 2021Q3

REPORT INFORMATION
  Report Type: Spontaneous
  Country: TR (occurrence: TR)
  Receive Date: 20210401
  Receipt Date: 20210805
  Transmission Date: 20211014
  Serious: Yes (Hospitalization, Other)
  Sender: FDA-Public Use
  Company Number: TR-IPCA LABORATORIES LIMITED-IPC-2021-TR-000755

PATIENT

DRUGS (1)
  1. HYDROXYCHLOROQUINE [Suspect]
     Active Substance: HYDROXYCHLOROQUINE
     Indication: COVID-19
     Dosage: 200 MILLIGRAM, BID
     Route: 065

REACTIONS (5)
  - Respiratory disorder [Recovered/Resolved]
  - Drug ineffective [Unknown]
  - Quality of life decreased [Recovering/Resolving]
  - Hypoglycaemia [Recovering/Resolving]
  - Condition aggravated [Recovered/Resolved]
